FAERS Safety Report 8297064-4 (Version None)
Quarter: 2012Q2

REPORT INFORMATION
  Report Type: 
  Country: None (occurrence: None)
  Receive Date: 20120416
  Receipt Date: 20120411
  Transmission Date: 20120825
  Serious: Yes (Hospitalization, Other)
  Sender: FDA-Public Use
  Company Number: 2011SP046655

PATIENT
  Age: 23 Year
  Sex: Female
  Weight: 64.8644 kg

DRUGS (10)
  1. STEROIDS [Suspect]
     Indication: COLITIS
     Dates: start: 20091001
  2. NUVARING [Suspect]
     Indication: DYSMENORRHOEA
     Dates: start: 20060101, end: 20091019
  3. NUVARING [Suspect]
     Indication: HYPOMENORRHOEA
     Dates: start: 20060101, end: 20091019
  4. NUVARING [Suspect]
     Indication: CONTRACEPTION
     Dates: start: 20060101, end: 20091019
  5. NUVARING [Suspect]
     Indication: DYSMENORRHOEA
     Dates: start: 20080901
  6. NUVARING [Suspect]
     Indication: HYPOMENORRHOEA
     Dates: start: 20080901
  7. NUVARING [Suspect]
     Indication: CONTRACEPTION
     Dates: start: 20080901
  8. NUVARING [Suspect]
     Indication: DYSMENORRHOEA
     Dates: end: 20080801
  9. NUVARING [Suspect]
     Indication: HYPOMENORRHOEA
     Dates: end: 20080801
  10. NUVARING [Suspect]
     Indication: CONTRACEPTION
     Dates: end: 20080801

REACTIONS (27)
  - ANTIPHOSPHOLIPID ANTIBODIES POSITIVE [None]
  - SURGERY [None]
  - ANXIETY [None]
  - EMOTIONAL DISORDER [None]
  - STRESS [None]
  - ENTEROCOLITIS INFECTIOUS [None]
  - INTERNATIONAL NORMALISED RATIO INCREASED [None]
  - ECONOMIC PROBLEM [None]
  - INJURY [None]
  - CERVICAL DYSPLASIA [None]
  - HERPES ZOSTER [None]
  - INFLAMMATORY BOWEL DISEASE [None]
  - GAIT DISTURBANCE [None]
  - MIGRAINE [None]
  - INSOMNIA [None]
  - FATIGUE [None]
  - AFFECT LABILITY [None]
  - PAPILLOMA VIRAL INFECTION [None]
  - DEPRESSION [None]
  - DEEP VEIN THROMBOSIS [None]
  - DYSMENORRHOEA [None]
  - COLITIS [None]
  - MOOD SWINGS [None]
  - PULMONARY EMBOLISM [None]
  - H1N1 INFLUENZA [None]
  - PAIN IN EXTREMITY [None]
  - MONONUCLEOSIS SYNDROME [None]
